FAERS Safety Report 8217212-1 (Version None)
Quarter: 2012Q1

REPORT INFORMATION
  Report Type: 
  Country: None (occurrence: None)
  Receive Date: 20120319
  Receipt Date: 20120316
  Transmission Date: 20120608
  Serious: No
  Sender: FDA-Public Use
  Company Number: US-PFIZER INC-2012070140

PATIENT
  Sex: Female
  Weight: 68.934 kg

DRUGS (5)
  1. SIMVASTATIN [Concomitant]
     Indication: BLOOD CHOLESTEROL ABNORMAL
     Dosage: 20 MG, DAILY
  2. PREDNISONE [Concomitant]
     Indication: FIBROMYALGIA
     Dosage: 4 MG, DAILY
  3. CHANTIX [Suspect]
     Indication: SMOKING CESSATION THERAPY
     Dosage: 1 MG, 2X/DAY
     Route: 048
     Dates: start: 20110101, end: 20110101
  4. CITALOPRAM HYDROBROMIDE [Concomitant]
     Indication: DEPRESSION
     Dosage: 20 MG, DAILY
  5. CHANTIX [Suspect]
     Dosage: 1 MG, DAILY
     Route: 048
     Dates: start: 20110101, end: 20110901

REACTIONS (1)
  - INSOMNIA [None]
